FAERS Safety Report 25760252 (Version 1)
Quarter: 2025Q3

REPORT INFORMATION
  Report Type: Spontaneous
  Country: US (occurrence: None)
  Receive Date: 20250903
  Receipt Date: 20250903
  Transmission Date: 20251021
  Serious: No
  Sender: FDA-CTU
  Company Number: None

PATIENT
  Age: 68 Year
  Sex: Male
  Weight: 160.57 kg

DRUGS (1)
  1. ELTROMBOPAG [Suspect]
     Active Substance: ELTROMBOPAG
     Indication: Aplastic anaemia
     Dosage: TAKE  2 TABLETS BY MOUTH DAILY AS DIRECTED.
     Route: 048
     Dates: start: 202508

REACTIONS (2)
  - Asthenia [None]
  - Pyrexia [None]
